FAERS Safety Report 7117092-1 (Version None)
Quarter: 2010Q4

REPORT INFORMATION
  Report Type: 
  Country: None (occurrence: None)
  Receive Date: 20101122
  Receipt Date: 20101115
  Transmission Date: 20110411
  Serious: No
  Sender: FDA-Public Use
  Company Number: US-PFIZER INC-2010148708

PATIENT
  Sex: Female
  Weight: 88 kg

DRUGS (5)
  1. LIPITOR [Suspect]
     Indication: BLOOD CHOLESTEROL INCREASED
     Dosage: 40 MG, DAILY
     Route: 048
     Dates: end: 20101101
  2. AMARYL [Concomitant]
     Dosage: 2 MG, 2X/DAY
  3. LEVOTHYROXINE [Concomitant]
     Dosage: 137 MCG, DAILY
  4. METFORMIN HYDROCHLORIDE/SITAGLIPTIN [Concomitant]
     Dosage: 50/1000 MG, 2X/DAY
  5. LANTUS [Concomitant]
     Dosage: 30 UNITS, DAILY

REACTIONS (3)
  - BLOOD IRON DECREASED [None]
  - NERVOUSNESS [None]
  - VOMITING [None]
